FAERS Safety Report 6710149-6 (Version None)
Quarter: 2010Q2

REPORT INFORMATION
  Report Type: 
  Country: None (occurrence: None)
  Receive Date: 20100430
  Receipt Date: 20100421
  Transmission Date: 20101027
  Serious: Yes (Disabling)
  Sender: FDA-Public Use
  Company Number: TOR 2010-0024

PATIENT
  Age: 70 Year
  Sex: Female

DRUGS (1)
  1. FARESTON [Suspect]
     Indication: BREAST CANCER STAGE IV
     Dosage: 120 MG ORAL
     Route: 048
     Dates: start: 20081125, end: 20090107

REACTIONS (1)
  - SUBARACHNOID HAEMORRHAGE [None]
